FAERS Safety Report 26002844 (Version 1)
Quarter: 2025Q4

REPORT INFORMATION
  Report Type: Spontaneous
  Country: EU (occurrence: EU)
  Receive Date: 20251106
  Receipt Date: 20251106
  Transmission Date: 20260118
  Serious: Yes (Other)
  Sender: JOHNSON AND JOHNSON
  Company Number: EU-BAYER-2025A146192

PATIENT
  Age: 38 Year
  Sex: Male

DRUGS (3)
  1. XARELTO [Suspect]
     Active Substance: RIVAROXABAN
     Indication: Anticoagulant therapy
     Dosage: UNK
     Dates: start: 2016
  2. ASPIRIN [Concomitant]
     Active Substance: ASPIRIN
     Indication: Anticoagulant therapy
     Dosage: UNK
     Dates: start: 2016
  3. WARFARIN [Concomitant]
     Active Substance: WARFARIN
     Indication: Anticoagulant therapy

REACTIONS (2)
  - Aortic valve stenosis [Unknown]
  - Aortic valve incompetence [Unknown]
